FAERS Safety Report 20556728 (Version 1)
Quarter: 2022Q1

REPORT INFORMATION
  Report Type: Other
  Country: None (occurrence: DE)
  Receive Date: 20220307
  Receipt Date: 20220307
  Transmission Date: 20220424
  Serious: Yes (Other)
  Sender: FDA-Public Use
  Company Number: DE-Ajanta Pharma USA Inc.-2126497

PATIENT
  Age: 30 Year
  Sex: Female

DRUGS (1)
  1. VORICONAZOLE [Suspect]
     Active Substance: VORICONAZOLE
     Indication: Bronchopulmonary aspergillosis

REACTIONS (4)
  - Toxicity to various agents [Recovered/Resolved]
  - Synovitis [Recovered/Resolved]
  - Enthesopathy [Recovered/Resolved]
  - Periostitis [Recovered/Resolved]
